FAERS Safety Report 4635175-2 (Version None)
Quarter: 2005Q2

REPORT INFORMATION
  Report Type: 
  Country: None (occurrence: None)
  Receive Date: 20050414
  Receipt Date: 20050113
  Transmission Date: 20051028
  Serious: Yes (Death, Hospitalization)
  Sender: FDA-Public Use
  Company Number: DE-GLAXOSMITHKLINE-D0045626A

PATIENT
  Age: 10 Year
  Sex: Male
  Weight: 25 kg

DRUGS (1)
  1. LAMICTAL [Suspect]
     Indication: CONVULSION
     Dosage: 30MG TWICE PER DAY
     Route: 048
     Dates: start: 20040315, end: 20050111

REACTIONS (20)
  - ANAEMIA [None]
  - ANOREXIA [None]
  - APATHY [None]
  - CARDIAC FAILURE [None]
  - DEHYDRATION [None]
  - HAEMATEMESIS [None]
  - HYPERKALAEMIA [None]
  - HYPERNATRAEMIA [None]
  - HYPOKALAEMIA [None]
  - HYPOTENSION [None]
  - KUSSMAUL RESPIRATION [None]
  - MELAENA [None]
  - ORAL CANDIDIASIS [None]
  - QUADRIPARESIS [None]
  - RENAL FAILURE [None]
  - RHABDOMYOLYSIS [None]
  - SKIN ODOUR ABNORMAL [None]
  - SOMNOLENCE [None]
  - STOMATITIS [None]
  - TACHYCARDIA [None]
